FAERS Safety Report 4378336-2 (Version None)
Quarter: 2004Q2

REPORT INFORMATION
  Report Type: 
  Country: None (occurrence: None)
  Receive Date: 20040609
  Receipt Date: 20040524
  Transmission Date: 20050107
  Serious: Yes (Other)
  Sender: FDA-Public Use
  Company Number: US_0405103289

PATIENT
  Age: 63 Year
  Sex: Male

DRUGS (2)
  1. FORTEO [Suspect]
     Indication: OSTEOPOROSIS
     Dosage: 20 UG/1 DAY
     Dates: start: 20031201
  2. PREDNISONE [Concomitant]

REACTIONS (3)
  - CARDIAC VALVE DISEASE [None]
  - PULMONARY HYPERTENSION [None]
  - TREATMENT NONCOMPLIANCE [None]
